FAERS Safety Report 5756079-8 (Version None)
Quarter: 2008Q2

REPORT INFORMATION
  Report Type: 
  Country: None (occurrence: None)
  Receive Date: 20080602
  Receipt Date: 20080527
  Transmission Date: 20081010
  Serious: Yes (Death)
  Sender: FDA-Public Use
  Company Number: AU-BOEHRINGER INGELHEIM GMBH, GERMANY-2008-BP-08247RO

PATIENT
  Age: 68 Year
  Sex: Female

DRUGS (17)
  1. FLUCONAZOLE [Suspect]
     Indication: CRYPTOCOCCOSIS
  2. FLUCONAZOLE [Suspect]
  3. FLUCYTOSINE [Suspect]
     Indication: CRYPTOCOCCOSIS
  4. METOPROLOL TARTRATE [Suspect]
  5. METOPROLOL TARTRATE [Suspect]
  6. ASPIRIN [Suspect]
  7. INDAPAMIDE [Concomitant]
     Indication: HYPERTENSION
  8. AMPHOTERICIN B [Concomitant]
     Indication: CRYPTOCOCCOSIS
  9. AMPHOTERICIN B [Concomitant]
     Indication: CRYPTOCOCCOSIS
  10. AMPHOTERICIN B [Concomitant]
     Indication: CRYPTOCOCCOSIS
  11. MAGNESIUM [Concomitant]
     Indication: TORSADE DE POINTES
     Route: 042
  12. EPINEPHRINE [Concomitant]
     Indication: CARDIO-RESPIRATORY ARREST
  13. EPINEPHRINE [Concomitant]
     Indication: ATRIAL FIBRILLATION
  14. EPINEPHRINE [Concomitant]
     Indication: CARDIAC ARREST
  15. ATROPINE [Concomitant]
     Indication: CARDIO-RESPIRATORY ARREST
  16. ATROPINE [Concomitant]
     Indication: ATRIAL FIBRILLATION
  17. ATROPINE [Concomitant]
     Indication: CARDIAC ARREST

REACTIONS (6)
  - BRAIN INJURY [None]
  - CARDIAC ARREST [None]
  - CARDIO-RESPIRATORY ARREST [None]
  - GRAND MAL CONVULSION [None]
  - TORSADE DE POINTES [None]
  - VENTRICULAR FIBRILLATION [None]
